FAERS Safety Report 15250049 (Version 3)
Quarter: 2019Q1

REPORT INFORMATION
  Report Type: Spontaneous
  Country: US (occurrence: US)
  Receive Date: 20180807
  Receipt Date: 20190103
  Transmission Date: 20190417
  Serious: No
  Sender: FDA-Public Use
  Company Number: US-AMGEN-USASP2018105112

PATIENT
  Age: 65 Year
  Sex: Male

DRUGS (3)
  1. ENBREL [Suspect]
     Active Substance: ETANERCEPT
     Indication: PSORIATIC ARTHROPATHY
     Dosage: 50 MG, QWK
     Route: 065
     Dates: start: 2017
  2. TRAMADOL. [Concomitant]
     Active Substance: TRAMADOL
     Dosage: 50 MG, UNK
  3. MELOXICAM. [Concomitant]
     Active Substance: MELOXICAM
     Dosage: UNK, AS NECESSARY
     Route: 065

REACTIONS (11)
  - Scab [Recovered/Resolved]
  - Arthropod bite [Recovered/Resolved]
  - Joint swelling [Unknown]
  - Feeling abnormal [Unknown]
  - Pain [Unknown]
  - Chondropathy [Unknown]
  - Pruritus [Recovered/Resolved]
  - Dermatitis contact [Recovered/Resolved]
  - Injury [Unknown]
  - Exposure to toxic agent [Recovered/Resolved]
  - Drug effect delayed [Unknown]

NARRATIVE: CASE EVENT DATE: 201807
